FAERS Safety Report 21754424 (Version 1)
Quarter: 2022Q4

REPORT INFORMATION
  Report Type: Spontaneous
  Country: US (occurrence: US)
  Receive Date: 20221220
  Receipt Date: 20221220
  Transmission Date: 20230113
  Serious: Yes (Other)
  Sender: FDA-Public Use
  Company Number: US-PFIZER INC-PV202200125811

PATIENT
  Age: 50 Year
  Sex: Male

DRUGS (1)
  1. XELJANZ [Suspect]
     Active Substance: TOFACITINIB CITRATE
     Dosage: UNK

REACTIONS (21)
  - Polyarthritis [Not Recovered/Not Resolved]
  - Seronegative arthritis [Unknown]
  - Synovitis [Recovering/Resolving]
  - Joint effusion [Recovering/Resolving]
  - Arthralgia [Unknown]
  - Myalgia [Unknown]
  - Musculoskeletal stiffness [Unknown]
  - Oedema peripheral [Unknown]
  - Cough [Unknown]
  - Paraesthesia [Unknown]
  - Hypoaesthesia [Unknown]
  - Headache [Unknown]
  - Dizziness [Unknown]
  - Balance disorder [Unknown]
  - Thirst [Unknown]
  - Pollakiuria [Unknown]
  - Decreased appetite [Unknown]
  - Ocular discomfort [Unknown]
  - Insomnia [Unknown]
  - Pain [Unknown]
  - Back pain [Unknown]
